FAERS Safety Report 5150622-8 (Version None)
Quarter: 2006Q4

REPORT INFORMATION
  Report Type: 
  Country: None (occurrence: None)
  Receive Date: 20061110
  Receipt Date: 20061110
  Transmission Date: 20070319
  Serious: Yes (Other)
  Sender: FDA-Public Use
  Company Number: None

PATIENT
  Age: 48 Year
  Sex: Male
  Weight: 120.2032 kg

DRUGS (3)
  1. PAIN RELIEVER    500MG    EQUATE [Suspect]
     Indication: ARTHRITIS
     Dosage: 1000   Q 4 HRS   PO
     Route: 048
     Dates: start: 20061101, end: 20061109
  2. PAIN RELIEVER    500MG    EQUATE [Suspect]
     Indication: HEADACHE
     Dosage: 1000   Q 4 HRS   PO
     Route: 048
     Dates: start: 20061101, end: 20061109
  3. PAIN RELIEVER    500MG    EQUATE [Suspect]
     Indication: OSTEOARTHRITIS
     Dosage: 1000   Q 4 HRS   PO
     Route: 048
     Dates: start: 20061101, end: 20061109

REACTIONS (5)
  - DIARRHOEA [None]
  - ORAL PAIN [None]
  - PHARMACEUTICAL PRODUCT COMPLAINT [None]
  - POOR QUALITY DRUG ADMINISTERED [None]
  - STOMACH DISCOMFORT [None]
